FAERS Safety Report 13737432 (Version 2)
Quarter: 2017Q3

REPORT INFORMATION
  Report Type: Spontaneous
  Country: US (occurrence: US)
  Receive Date: 20170710
  Receipt Date: 20170719
  Transmission Date: 20171127
  Serious: Yes (Hospitalization)
  Sender: FDA-Public Use
  Company Number: US-VERTEX PHARMACEUTICALS-2017-003547

PATIENT
  Age: 16 Year
  Sex: Female

DRUGS (11)
  1. PULMOZYME [Concomitant]
     Active Substance: DORNASE ALFA
     Dosage: 1 VIAL, BID
     Route: 055
  2. ORKAMBI [Suspect]
     Active Substance: IVACAFTOR\LUMACAFTOR
     Indication: CYSTIC FIBROSIS
     Dosage: 400/ 250 MG, BID
     Route: 048
     Dates: start: 20150720
  3. ZENPEP [Concomitant]
     Active Substance: PANCRELIPASE AMYLASE\PANCRELIPASE LIPASE\PANCRELIPASE PROTEASE
     Indication: PANCREATIC FAILURE
     Dosage: 1 CAPSULE WITH MEALS AND 3 OR 4 WITH SNACKS
  4. MONTELUKAST SODIUM. [Concomitant]
     Active Substance: MONTELUKAST SODIUM
     Dosage: 1 DF, QHS
     Route: 048
  5. CLOFAZIMINE [Concomitant]
     Active Substance: CLOFAZIMINE
     Indication: MYCOBACTERIAL INFECTION
     Dosage: HALF TABLET, QD
     Route: 048
  6. PROAIR HFA [Concomitant]
     Active Substance: ALBUTEROL SULFATE
     Indication: ASTHMA
     Dosage: 2 PUFFS, QID, PRN WITH SPACER
     Route: 055
  7. PULMOSAL [Concomitant]
     Indication: CYSTIC FIBROSIS
     Dosage: 1 DF, TID
     Route: 055
  8. AZITHROMYCIN ANHYDROUS. [Concomitant]
     Active Substance: AZITHROMYCIN ANHYDROUS
     Dosage: 1 DF, MON, WED, FRI
     Route: 048
  9. AQUADEKS [Concomitant]
     Active Substance: MINERALS\VITAMINS
     Indication: PANCREATIC FAILURE
     Dosage: 2 DF, QD
  10. XOPENEX [Concomitant]
     Active Substance: LEVALBUTEROL HYDROCHLORIDE
     Indication: CYSTIC FIBROSIS
     Dosage: 1 VIAL, TID VIA NEBULIZER
     Route: 055
  11. PREVACID [Concomitant]
     Active Substance: LANSOPRAZOLE
     Indication: GASTROOESOPHAGEAL REFLUX DISEASE
     Dosage: 1 DF, BID

REACTIONS (1)
  - Cystic fibrosis respiratory infection suppression [Not Recovered/Not Resolved]

NARRATIVE: CASE EVENT DATE: 20170705
